FAERS Safety Report 8657902 (Version 4)
Quarter: 2012Q4

REPORT INFORMATION
  Report Type: 
  Country: JP (occurrence: JP)
  Receive Date: 20120710
  Receipt Date: 20121019
  Transmission Date: 20130627
  Serious: Yes (Hospitalization)
  Sender: FDA-Public Use
  Company Number: JP-PFIZER INC-2012161567

PATIENT
  Age: 57 Year
  Sex: Male
  Weight: 73.1 kg

DRUGS (11)
  1. TORISEL [Suspect]
     Dosage: 20 mg, weekly
     Dates: start: 20120606
  2. TORISEL [Suspect]
     Dosage: 20 mg, weekly
     Dates: start: 20120613
  3. TORISEL [Suspect]
     Dosage: 20 mg, weekly
     Dates: start: 20120620
  4. LIPITOR [Suspect]
     Indication: HYPERLIPIDAEMIA
     Dosage: 10 mg, 1x/day
     Route: 048
     Dates: start: 20120613
  5. ZYLORIC [Suspect]
     Indication: HYPERURICAEMIA
     Dosage: 100 mg, 3x/day
     Route: 048
     Dates: start: 20120516
  6. BLOPRESS [Concomitant]
     Indication: HYPERTENSION
     Dosage: 8 mg, 1x/day
     Route: 048
     Dates: start: 200602
  7. LASIX [Concomitant]
     Indication: CARDIAC FAILURE
     Dosage: 20 mg, 1x/day
     Route: 048
     Dates: start: 200602
  8. NORVASC [Concomitant]
     Indication: HYPERTENSION
     Dosage: 2.5 mg, 1x/day
     Route: 048
     Dates: start: 200602
  9. NORVASC [Concomitant]
     Indication: HYPERTENSION
     Dosage: 5 mg, 2x/day
     Route: 048
     Dates: start: 200602
  10. MERISLON [Concomitant]
     Indication: DIZZINESS
     Dosage: 6 mg, 2x/day
     Route: 048
     Dates: start: 200602
  11. CEROCRAL [Concomitant]
     Indication: DIZZINESS
     Dosage: 20 mg, 2x/day
     Route: 048
     Dates: start: 200602

REACTIONS (1)
  - Interstitial lung disease [Recovering/Resolving]
